FAERS Safety Report 7936361-6 (Version None)
Quarter: 2011Q4

REPORT INFORMATION
  Report Type: 
  Country: None (occurrence: None)
  Receive Date: 20111121
  Receipt Date: 20111114
  Transmission Date: 20120403
  Serious: Yes (Disabling, Other)
  Sender: FDA-Public Use
  Company Number: ACO_27309_2011

PATIENT
  Age: 74 Year
  Sex: Female
  Weight: 70.3 kg

DRUGS (11)
  1. PROZAC [Concomitant]
  2. TYSABRI [Concomitant]
  3. GABAPENTIN [Concomitant]
  4. HYDROCODONE BITARTRATE [Concomitant]
  5. FUROSEMIDE [Concomitant]
  6. HYDROCHLOROTHIAZIDE [Concomitant]
  7. OMEPRAZOLE [Concomitant]
  8. MIRAPEX [Concomitant]
  9. AMPYRA [Suspect]
     Indication: GAIT DISTURBANCE
     Dosage: 10 MG, BID, ORAL
     Route: 048
  10. PROVIGIL [Concomitant]
  11. ENABLEX  /01760401/ (DARIFENACIN) [Concomitant]

REACTIONS (2)
  - HYPOKINESIA [None]
  - VISUAL IMPAIRMENT [None]
